FAERS Safety Report 6761425-2 (Version None)
Quarter: 2010Q2

REPORT INFORMATION
  Report Type: 
  Country: None (occurrence: None)
  Receive Date: 20100607
  Receipt Date: 20100526
  Transmission Date: 20101027
  Serious: Yes (Life-Threatening, Other)
  Sender: FDA-Public Use
  Company Number: 602738

PATIENT
  Age: 44 Year
  Sex: Female
  Weight: 66.7 kg

DRUGS (5)
  1. PACLITAXEL [Suspect]
     Indication: BREAST CANCER
     Dosage: 136 MG MILLIGRAM(S), INTRAVENOUS
     Route: 042
     Dates: start: 20100512, end: 20100512
  2. (CETRIZINE) [Concomitant]
  3. CHLORHEXIDINE GLUCONATE [Concomitant]
  4. (CODEINE LINCTUS) [Concomitant]
  5. METOCLOPRAMIDE [Concomitant]

REACTIONS (5)
  - ANAPHYLACTIC REACTION [None]
  - DIZZINESS [None]
  - DYSPNOEA [None]
  - FLUSHING [None]
  - OXYGEN SATURATION DECREASED [None]
